FAERS Safety Report 20574656 (Version 1)
Quarter: 2022Q1

REPORT INFORMATION
  Report Type: Spontaneous
  Country: US (occurrence: US)
  Receive Date: 20220309
  Receipt Date: 20220309
  Transmission Date: 20220423
  Serious: No
  Sender: FDA-Public Use
  Company Number: US-APOTEX-2022AP003894

PATIENT
  Age: 34 Year
  Sex: Female

DRUGS (4)
  1. DOXYCYCLINE [Suspect]
     Active Substance: DOXYCYCLINE
     Indication: Cat scratch disease
     Dosage: UNK
     Route: 048
  2. DOXYCYCLINE [Suspect]
     Active Substance: DOXYCYCLINE
     Indication: Antibiotic therapy
  3. RIFAMPIN [Suspect]
     Active Substance: RIFAMPIN
     Indication: Cat scratch disease
     Dosage: UNK
     Route: 065
  4. RIFAMPIN [Suspect]
     Active Substance: RIFAMPIN
     Indication: Antibiotic therapy

REACTIONS (2)
  - Treatment noncompliance [Unknown]
  - Abdominal discomfort [Unknown]
